FAERS Safety Report 5891002-7 (Version None)
Quarter: 2008Q3

REPORT INFORMATION
  Report Type: 
  Country: None (occurrence: None)
  Receive Date: 20080922
  Receipt Date: 20080910
  Transmission Date: 20090109
  Serious: Yes (Hospitalization)
  Sender: FDA-Public Use
  Company Number: B0536623A

PATIENT
  Age: 72 Year
  Sex: Male

DRUGS (9)
  1. AVANDIA [Suspect]
     Dosage: 8MG PER DAY
     Route: 048
     Dates: end: 20080627
  2. ACETAMINOPHEN [Suspect]
     Dosage: 6G PER DAY
     Route: 048
  3. LODOZ [Suspect]
     Dosage: 2.5MG PER DAY
     Route: 065
  4. PRIMPERAN INJ [Concomitant]
     Dosage: 1TAB SINGLE DOSE
     Route: 048
     Dates: start: 20080626, end: 20080626
  5. ASPIRIN [Concomitant]
     Dosage: 160MG PER DAY
     Route: 048
  6. METFORMIN HCL [Concomitant]
     Dosage: 850MG TWICE PER DAY
     Route: 065
  7. TAREG [Concomitant]
     Dosage: 160MG PER DAY
     Route: 065
  8. SPIRIVA [Concomitant]
     Dosage: 1PUFF PER DAY
     Route: 055
  9. PRAVASTATIN [Concomitant]
     Route: 065

REACTIONS (5)
  - CYTOLYTIC HEPATITIS [None]
  - HEPATIC FAILURE [None]
  - HYPERBILIRUBINAEMIA [None]
  - JAUNDICE [None]
  - PROTHROMBIN LEVEL DECREASED [None]
